FAERS Safety Report 5214131-X (Version None)
Quarter: 2007Q1

REPORT INFORMATION
  Report Type: 
  Country: None (occurrence: None)
  Receive Date: 20070116
  Receipt Date: 20070105
  Transmission Date: 20070707
  Serious: Yes (Hospitalization)
  Sender: FDA-Public Use
  Company Number: 100#03#2007-00089

PATIENT
  Age: 73 Year
  Sex: Male

DRUGS (5)
  1. CARBOPLATIN [Suspect]
     Indication: GASTRIC CANCER
     Dosage: 580 MG INTRAVENOUS (NOT OTHERWISE SPECIFIED)
     Route: 042
     Dates: start: 20061127, end: 20061127
  2. CAPECITABINE (CAPECITABINE) (CAPECITABINE) [Concomitant]
  3. DEXAMETHASONE (DEXAMETHASONE) (DEXAMETHASONE) [Concomitant]
  4. FLECAINIDE (FLECAINIDE) (FLECAINIDE) [Concomitant]
  5. METOCLOPRAMIDE (METOCLOPRAMIDE) (METOCLOPRAMIDE) [Concomitant]

REACTIONS (4)
  - HYPOTENSION [None]
  - ISCHAEMIA [None]
  - TACHYCARDIA [None]
  - VISION BLURRED [None]
